FAERS Safety Report 10393713 (Version 2)
Quarter: 2014Q3

REPORT INFORMATION
  Report Type: Spontaneous
  Country: FR (occurrence: FR)
  Receive Date: 20140819
  Receipt Date: 20140820
  Transmission Date: 20150326
  Serious: Yes (Hospitalization, Other)
  Sender: FDA-Public Use
  Company Number: FR-PFIZER INC-2014226136

PATIENT
  Age: 79 Year
  Sex: Female

DRUGS (5)
  1. SOLU-MEDROL [Suspect]
     Active Substance: METHYLPREDNISOLONE SODIUM SUCCINATE
     Indication: SCIATICA
     Dosage: 120 MG, 1X/DAY
     Route: 030
     Dates: start: 20140603, end: 20140604
  2. SOLU-MEDROL [Suspect]
     Active Substance: METHYLPREDNISOLONE SODIUM SUCCINATE
     Dosage: 40 MG, 1X/DAY
     Route: 030
     Dates: start: 20140607, end: 20140608
  3. SOLU-MEDROL [Suspect]
     Active Substance: METHYLPREDNISOLONE SODIUM SUCCINATE
     Dosage: 80 MG, 1X/DAY
     Route: 030
     Dates: start: 20140605, end: 20140606
  4. ARTOTEC [Suspect]
     Active Substance: DICLOFENAC SODIUM\MISOPROSTOL
     Indication: ARTHRALGIA
     Dosage: 1 DF, 1X/DAY
     Route: 048
     Dates: start: 20140310
  5. BI-PROFENID [Suspect]
     Active Substance: KETOPROFEN
     Indication: SCIATICA
     Dosage: 100 MG, 1X/DAY
     Route: 048
     Dates: start: 20140610

REACTIONS (3)
  - Renal failure acute [Recovered/Resolved]
  - Fluid retention [Recovered/Resolved]
  - Cardiac failure [Unknown]

NARRATIVE: CASE EVENT DATE: 20140610
